FAERS Safety Report 12226863 (Version 1)
Quarter: 2016Q1

REPORT INFORMATION
  Report Type: Report from Study
  Country: NZ (occurrence: NZ)
  Receive Date: 20160331
  Receipt Date: 20160331
  Transmission Date: 20160526
  Serious: Yes (Hospitalization, Other)
  Sender: FDA-Public Use
  Company Number: NZ-ABBVIE-16K-118-1589852-00

PATIENT
  Age: 49 Year
  Sex: Male

DRUGS (1)
  1. HUMIRA [Suspect]
     Active Substance: ADALIMUMAB
     Indication: CROHN^S DISEASE
     Route: 058

REACTIONS (5)
  - Body temperature increased [Unknown]
  - Diarrhoea [Unknown]
  - Malaise [Recovering/Resolving]
  - Gastrointestinal surgery [Unknown]
  - Campylobacter gastroenteritis [Recovering/Resolving]

NARRATIVE: CASE EVENT DATE: 20160316
